FAERS Safety Report 12184026 (Version 29)
Quarter: 2020Q2

REPORT INFORMATION
  Report Type: Report from Study
  Country: US (occurrence: US)
  Receive Date: 20160316
  Receipt Date: 20200514
  Transmission Date: 20200713
  Serious: Yes (Death, Hospitalization)
  Sender: FDA-Public Use
  Company Number: US-ACTELION-A-US2016-132495

PATIENT
  Age: 52 Year
  Sex: Female
  Weight: 74.38 kg

DRUGS (20)
  1. SINGULAIR [Concomitant]
     Active Substance: MONTELUKAST SODIUM
  2. VELETRI [Suspect]
     Active Substance: EPOPROSTENOL
     Indication: PULMONARY ARTERIAL HYPERTENSION
     Dosage: 35.71 NG/KG, PER MIN
     Route: 042
  3. GABAPENTIN. [Concomitant]
     Active Substance: GABAPENTIN
  4. VELETRI [Suspect]
     Active Substance: EPOPROSTENOL
     Dosage: 32.6 NG/KG, PER MIN
     Route: 042
  5. MONTELUKAST [Concomitant]
     Active Substance: MONTELUKAST SODIUM
     Dosage: UNK, QPM
     Dates: start: 20180505
  6. LASIX [Concomitant]
     Active Substance: FUROSEMIDE
     Dosage: UNK
     Dates: start: 20180628
  7. DIGOXIN. [Concomitant]
     Active Substance: DIGOXIN
  8. TYLENOL [Concomitant]
     Active Substance: ACETAMINOPHEN
  9. OPSUMIT [Suspect]
     Active Substance: MACITENTAN
     Indication: PULMONARY ARTERIAL HYPERTENSION
     Dosage: 10 MG, QD
     Route: 048
     Dates: start: 20151221
  10. CLONAZEPAM. [Concomitant]
     Active Substance: CLONAZEPAM
  11. LEVEMIR [Concomitant]
     Active Substance: INSULIN DETEMIR
  12. TRAMADOL. [Concomitant]
     Active Substance: TRAMADOL
  13. SPIRONOLACTONE. [Concomitant]
     Active Substance: SPIRONOLACTONE
  14. TOPROL XL [Concomitant]
     Active Substance: METOPROLOL SUCCINATE
  15. MUCINEX [Concomitant]
     Active Substance: GUAIFENESIN
     Dosage: UNK UNK, BID
     Dates: start: 20180505
  16. LASIX [Concomitant]
     Active Substance: FUROSEMIDE
     Dosage: 60 MG, QD
     Dates: start: 20180418
  17. ZYRTEC [Concomitant]
     Active Substance: CETIRIZINE HYDROCHLORIDE
  18. VELETRI [Suspect]
     Active Substance: EPOPROSTENOL
     Dosage: 26 NG/KG, PER MIN
     Route: 042
     Dates: start: 20110428
  19. COUMADIN [Concomitant]
     Active Substance: WARFARIN SODIUM
  20. WARFARIN [Concomitant]
     Active Substance: WARFARIN

REACTIONS (48)
  - Sputum discoloured [Recovered/Resolved]
  - Cough [Recovered/Resolved]
  - Fatigue [Recovered/Resolved]
  - Condition aggravated [Recovered/Resolved]
  - Pneumonia bacterial [Recovered/Resolved]
  - Peripheral swelling [Recovered/Resolved]
  - Ascites [Recovered/Resolved]
  - Abdominal pain upper [Unknown]
  - Pneumothorax [Unknown]
  - Haemoptysis [Unknown]
  - Atelectasis [Fatal]
  - Hypoxia [Recovered/Resolved]
  - Palpitations [Unknown]
  - Seasonal allergy [Recovered/Resolved]
  - Sputum purulent [Recovered/Resolved]
  - Oedema peripheral [Recovered/Resolved]
  - Pain in jaw [Not Recovered/Not Resolved]
  - Nausea [Unknown]
  - Pneumonia [Recovered/Resolved]
  - Productive cough [Recovered/Resolved]
  - Weight increased [Recovered/Resolved]
  - Wheezing [Fatal]
  - Oxygen saturation decreased [Recovered/Resolved]
  - Chronic obstructive pulmonary disease [Unknown]
  - Dyspnoea exertional [Not Recovered/Not Resolved]
  - Cardiac failure [Fatal]
  - Cardiac failure acute [Recovered/Resolved]
  - Diet noncompliance [Recovered/Resolved]
  - Respiratory distress [Recovered/Resolved]
  - Influenza [Recovered/Resolved]
  - Abdominal distension [Recovered/Resolved]
  - Sneezing [Recovered/Resolved]
  - Gastrooesophageal reflux disease [Unknown]
  - Respiratory failure [Fatal]
  - Renal failure [Fatal]
  - Pulmonary arterial hypertension [Fatal]
  - Infection [Recovered/Resolved]
  - Haematemesis [Unknown]
  - Pulmonary hypertension [Recovered/Resolved]
  - Fall [Unknown]
  - Skin abrasion [Unknown]
  - Pyrexia [Recovered/Resolved]
  - Heart rate increased [Unknown]
  - Flushing [Not Recovered/Not Resolved]
  - Platelet count increased [Recovered/Resolved]
  - Dyspnoea [Recovered/Resolved]
  - Epistaxis [Recovered/Resolved]
  - Lacrimation increased [Recovered/Resolved]

NARRATIVE: CASE EVENT DATE: 20160210
